FAERS Safety Report 13157980 (Version 1)
Quarter: 2017Q1

REPORT INFORMATION
  Report Type: Spontaneous
  Country: US (occurrence: US)
  Receive Date: 20170124
  Receipt Date: 20170124
  Transmission Date: 20170428
  Serious: No
  Sender: FDA-Public Use
  Company Number: None

PATIENT
  Age: 35 Year
  Sex: Female

DRUGS (6)
  1. OCALIVA [Suspect]
     Active Substance: OBETICHOLIC ACID
     Indication: BILIARY CIRRHOSIS PRIMARY
     Route: 048
     Dates: start: 20161230
  2. BUPROPION. [Concomitant]
     Active Substance: BUPROPION
  3. MICROGESTIN [Concomitant]
     Active Substance: ETHINYL ESTRADIOL\NORETHINDRONE ACETATE
  4. HYDROXYZINE [Concomitant]
     Active Substance: HYDROXYZINE HYDROCHLORIDE
  5. VITAMIN D [Concomitant]
     Active Substance: CHOLECALCIFEROL
  6. URSODIOL. [Concomitant]
     Active Substance: URSODIOL

REACTIONS (4)
  - Psychomotor hyperactivity [None]
  - Dysphonia [None]
  - Chromaturia [None]
  - Faeces discoloured [None]

NARRATIVE: CASE EVENT DATE: 20170106
